FAERS Safety Report 25553835 (Version 2)
Quarter: 2025Q3

REPORT INFORMATION
  Report Type: Report from Study
  Country: EU (occurrence: EU)
  Receive Date: 20250715
  Receipt Date: 20250722
  Transmission Date: 20251020
  Serious: Yes (Other)
  Sender: MYLAN
  Company Number: EU-MYLANLABS-2025M1057991

PATIENT
  Age: 69 Year
  Sex: Male

DRUGS (20)
  1. ROCURONIUM [Interacting]
     Active Substance: ROCURONIUM BROMIDE
     Indication: Anaesthesia
  2. ROCURONIUM [Interacting]
     Active Substance: ROCURONIUM BROMIDE
     Route: 042
  3. ROCURONIUM [Interacting]
     Active Substance: ROCURONIUM BROMIDE
     Route: 042
  4. ROCURONIUM [Interacting]
     Active Substance: ROCURONIUM BROMIDE
  5. NORTRIPTYLINE [Interacting]
     Active Substance: NORTRIPTYLINE
     Indication: Depression
  6. NORTRIPTYLINE [Interacting]
     Active Substance: NORTRIPTYLINE
     Route: 065
  7. NORTRIPTYLINE [Interacting]
     Active Substance: NORTRIPTYLINE
     Route: 065
  8. NORTRIPTYLINE [Interacting]
     Active Substance: NORTRIPTYLINE
  9. PROPOFOL [Interacting]
     Active Substance: PROPOFOL
     Indication: Anaesthesia
  10. PROPOFOL [Interacting]
     Active Substance: PROPOFOL
     Route: 042
  11. PROPOFOL [Interacting]
     Active Substance: PROPOFOL
     Route: 042
  12. PROPOFOL [Interacting]
     Active Substance: PROPOFOL
  13. SUFENTANIL [Interacting]
     Active Substance: SUFENTANIL
     Indication: Anaesthesia
  14. SUFENTANIL [Interacting]
     Active Substance: SUFENTANIL
     Route: 042
  15. SUFENTANIL [Interacting]
     Active Substance: SUFENTANIL
     Route: 042
  16. SUFENTANIL [Interacting]
     Active Substance: SUFENTANIL
  17. DESFLURANE [Interacting]
     Active Substance: DESFLURANE
     Indication: Anaesthesia
  18. DESFLURANE [Interacting]
     Active Substance: DESFLURANE
     Route: 042
  19. DESFLURANE [Interacting]
     Active Substance: DESFLURANE
     Route: 042
  20. DESFLURANE [Interacting]
     Active Substance: DESFLURANE

REACTIONS (2)
  - Hypotension [Unknown]
  - Drug interaction [Unknown]
